FAERS Safety Report 17017788 (Version 2)
Quarter: 2020Q1

REPORT INFORMATION
  Report Type: Spontaneous
  Country: US (occurrence: US)
  Receive Date: 20191111
  Receipt Date: 20200205
  Transmission Date: 20200409
  Serious: No
  Sender: FDA-Public Use
  Company Number: US-PFIZER INC-2019333943

PATIENT
  Age: 73 Year
  Sex: Female
  Weight: 57 kg

DRUGS (14)
  1. POTASSIUM CHLORIDE. [Concomitant]
     Active Substance: POTASSIUM CHLORIDE
     Dosage: UNK (20 MEQ CR TABLET)
  2. VITAMIN D3 [Concomitant]
     Active Substance: CHOLECALCIFEROL
     Dosage: UNK
     Route: 048
  3. CYANOCOBALAMIN. [Concomitant]
     Active Substance: CYANOCOBALAMIN
     Dosage: UNK
  4. ZOCOR [Concomitant]
     Active Substance: SIMVASTATIN
     Dosage: UNK
  5. BLEPH-10 [Concomitant]
     Active Substance: SULFACETAMIDE SODIUM
     Dosage: UNK [OPHTHALMIC SOLUTION]
  6. XGEVA [Concomitant]
     Active Substance: DENOSUMAB
     Dosage: UNK (120 MG/1. 7 ML (70 MG/ML) SOLUTION INJECTION)
  7. MAG-OX [Concomitant]
     Active Substance: MAGNESIUM OXIDE
     Dosage: UNK
  8. B COMPLEX [VITAMIN B COMPLEX] [Concomitant]
     Dosage: UNK
     Route: 048
  9. OMEGA 3 [FISH OIL] [Concomitant]
     Active Substance: FISH OIL
     Dosage: UNK (120 MG-180 MG- 60 MG-1,200 MG CAPSULE, DELAYED RELEASE(DR/EC))
  10. IBRANCE [Suspect]
     Active Substance: PALBOCICLIB
     Indication: BREAST CANCER METASTATIC
     Dosage: 125 MG, CYCLIC (125 MG ONCE DAILY X 21 DAYS-RSET X 7 DAYS)
     Route: 048
     Dates: start: 20171205, end: 20191022
  11. EXCEDRIN EXTRA STRENGTH [Concomitant]
     Active Substance: ACETAMINOPHEN\ASPIRIN\CAFFEINE
     Dosage: UNK
     Route: 048
  12. FASLODEX [Concomitant]
     Active Substance: FULVESTRANT
     Dosage: UNK (250 MG/5 ML CHEMO SYRINGE)
  13. BUMEX [Concomitant]
     Active Substance: BUMETANIDE
     Dosage: UNK
  14. CALTRATE [Concomitant]
     Active Substance: CALCIUM CARBONATE
     Dosage: UNK
     Route: 048

REACTIONS (2)
  - Fall [Unknown]
  - Neoplasm progression [Unknown]

NARRATIVE: CASE EVENT DATE: 201910
